FAERS Safety Report 5993606-X (Version None)
Quarter: 2008Q4

REPORT INFORMATION
  Report Type: 
  Country: None (occurrence: None)
  Receive Date: 20081212
  Receipt Date: 20081205
  Transmission Date: 20090506
  Serious: Yes (Other)
  Sender: FDA-Public Use
  Company Number: PHHY2008BR31045

PATIENT
  Age: 59 Year
  Sex: Female
  Weight: 84 kg

DRUGS (2)
  1. EXFORGE [Suspect]
     Indication: HYPERTENSION
     Dosage: HALF TABLET PER DAY
     Route: 048
     Dates: end: 20081204
  2. EXFORGE [Suspect]
     Dosage: ONE TABLET PER DAY
     Dates: start: 20081205

REACTIONS (2)
  - HYPERTENSION [None]
  - INCREASED UPPER AIRWAY SECRETION [None]
